FAERS Safety Report 11721445 (Version 1)
Quarter: 2015Q4

REPORT INFORMATION
  Report Type: Report from Study
  Country: US (occurrence: US)
  Receive Date: 20151111
  Receipt Date: 20151111
  Transmission Date: 20160304
  Serious: Yes (Hospitalization, Other)
  Sender: FDA-Public Use
  Company Number: US-AMGEN-USASL2015116781

PATIENT
  Age: 62 Year
  Sex: Female

DRUGS (2)
  1. PLAVIX [Concomitant]
     Active Substance: CLOPIDOGREL BISULFATE
  2. REPATHA [Suspect]
     Active Substance: EVOLOCUMAB
     Indication: PRODUCT USED FOR UNKNOWN INDICATION
     Dosage: 140 MG, Q2WK
     Route: 065
     Dates: start: 20151029

REACTIONS (4)
  - Rash pruritic [Recovered/Resolved]
  - Urticaria [Recovered/Resolved]
  - Dyspnoea [Unknown]
  - Swollen tongue [Recovering/Resolving]

NARRATIVE: CASE EVENT DATE: 2015
